FAERS Safety Report 13633162 (Version 1)
Quarter: 2017Q2

REPORT INFORMATION
  Report Type: Spontaneous
  Country: US (occurrence: US)
  Receive Date: 20170531
  Receipt Date: 20170531
  Transmission Date: 20170830
  Serious: No
  Sender: FDA-Public Use
  Company Number: US-ASTELLAS-1514074

PATIENT
  Sex: Male

DRUGS (8)
  1. DEXAMETHASONE. [Concomitant]
     Active Substance: DEXAMETHASONE
  2. KEPPRA [Concomitant]
     Active Substance: LEVETIRACETAM
  3. VENTOLIN [Concomitant]
     Active Substance: ALBUTEROL SULFATE
  4. MEGESTROL [Concomitant]
     Active Substance: MEGESTROL
  5. PROTONIX [Concomitant]
     Active Substance: PANTOPRAZOLE SODIUM
  6. WARFARIN [Concomitant]
     Active Substance: WARFARIN
  7. ENALAPRIL [Concomitant]
     Active Substance: ENALAPRIL
  8. TARCEVA [Suspect]
     Active Substance: ERLOTINIB HYDROCHLORIDE
     Indication: LUNG NEOPLASM MALIGNANT
     Route: 048
     Dates: start: 20140918, end: 20141222

REACTIONS (2)
  - Treatment failure [Unknown]
  - Lung neoplasm malignant [Unknown]
